FAERS Safety Report 8417122-0 (Version None)
Quarter: 2012Q2

REPORT INFORMATION
  Report Type: 
  Country: None (occurrence: None)
  Receive Date: 20120606
  Receipt Date: 20120525
  Transmission Date: 20120825
  Serious: Yes (Hospitalization)
  Sender: FDA-Public Use
  Company Number: US-ACTELION-A-NJ2012-65666

PATIENT

DRUGS (7)
  1. REVATIO [Concomitant]
  2. ASPIRIN [Concomitant]
  3. VITAMIN E [Concomitant]
  4. DEPO-PROVERA [Concomitant]
  5. TRACLEER [Suspect]
     Indication: PULMONARY ARTERIAL HYPERTENSION
     Dosage: 125 MG, UNK
     Route: 048
     Dates: start: 20081205
  6. VALTREX [Concomitant]
  7. VENTOLIN [Concomitant]

REACTIONS (2)
  - INFECTION [None]
  - CYANOSIS [None]
